FAERS Safety Report 6359992-6 (Version None)
Quarter: 2009Q3

REPORT INFORMATION
  Report Type: 
  Country: None (occurrence: None)
  Receive Date: 20090917
  Receipt Date: 20090907
  Transmission Date: 20100115
  Serious: Yes (Hospitalization)
  Sender: FDA-Public Use
  Company Number: JP-SANOFI-SYNTHELABO-A01200909333

PATIENT
  Sex: Male
  Weight: 64 kg

DRUGS (10)
  1. DIPHENHYDRAMINE HCL [Concomitant]
     Indication: DERMATITIS ALLERGIC
     Dosage: UNK
     Route: 061
  2. OXINORM [Concomitant]
     Indication: CANCER PAIN
     Dosage: UNK
     Route: 048
  3. OXYCONTIN [Concomitant]
     Indication: CANCER PAIN
     Route: 048
  4. MUCOSTA [Concomitant]
     Indication: GASTRITIS PROPHYLAXIS
     Route: 048
  5. LOXOPROFEN [Concomitant]
     Indication: CANCER PAIN
     Route: 048
  6. LUPRAC [Concomitant]
     Indication: OEDEMA PERIPHERAL
     Dosage: 8 MG
     Route: 048
  7. BEVACIZUMAB [Suspect]
     Indication: LARGE INTESTINE CARCINOMA
     Dosage: 5 MG/KG
     Route: 041
     Dates: start: 20090827, end: 20090827
  8. FLUOROURACIL [Suspect]
     Indication: LARGE INTESTINE CARCINOMA
     Dosage: 400MG/M2 IN BOLUS THEN 2400MG/M2/D1-2 AS CONTINUOUS INFUSION
     Route: 042
     Dates: start: 20090827, end: 20090827
  9. CALCIUM LEVOFOLINATE [Suspect]
     Indication: LARGE INTESTINE CARCINOMA
     Dosage: 200 MG/M2
     Route: 041
     Dates: start: 20090827, end: 20090827
  10. OXALIPLATIN [Suspect]
     Indication: LARGE INTESTINE CARCINOMA
     Dosage: 85 MG/M2
     Route: 041
     Dates: start: 20090827, end: 20090827

REACTIONS (1)
  - CHOLANGITIS [None]
